FAERS Safety Report 12790530 (Version 6)
Quarter: 2018Q4

REPORT INFORMATION
  Report Type: Report from Study
  Country: US (occurrence: US)
  Receive Date: 20160929
  Receipt Date: 20181029
  Transmission Date: 20190204
  Serious: Yes (Hospitalization)
  Sender: FDA-Public Use
  Company Number: US-ACTELION-A-NJ2016-139252

PATIENT
  Age: 72 Year
  Sex: Female

DRUGS (10)
  1. ATOVAQUONE. [Concomitant]
     Active Substance: ATOVAQUONE
     Dosage: UNK
     Dates: start: 20160620
  2. METHYLPREDNISOLONE. [Concomitant]
     Active Substance: METHYLPREDNISOLONE
  3. LEVOTHYROXINE. [Concomitant]
     Active Substance: LEVOTHYROXINE
  4. PREDNISONE ACETATE [Concomitant]
     Active Substance: PREDNISONE ACETATE
     Dosage: UNK
     Dates: start: 20160720
  5. APIXABAN [Concomitant]
     Active Substance: APIXABAN
  6. ACETAMINOPHEN. [Concomitant]
     Active Substance: ACETAMINOPHEN
  7. FUROSEMIDE. [Concomitant]
     Active Substance: FUROSEMIDE
     Route: 042
  8. CARBOXYMETHYLCELLULOSE [Concomitant]
     Active Substance: CARBOXYMETHYLCELLULOSE
  9. OPSUMIT [Suspect]
     Active Substance: MACITENTAN
     Indication: PULMONARY ARTERIAL HYPERTENSION
     Dosage: 10 MG, QD
     Route: 048
     Dates: start: 20160622, end: 20160715
  10. CYCLOSPORINE. [Concomitant]
     Active Substance: CYCLOSPORINE
     Dosage: UNK
     Route: 047
     Dates: start: 20160325

REACTIONS (23)
  - Dyspnoea exertional [Not Recovered/Not Resolved]
  - Unevaluable event [Unknown]
  - Anaemia [Not Recovered/Not Resolved]
  - Dizziness [Not Recovered/Not Resolved]
  - Confusional state [Recovered/Resolved with Sequelae]
  - Hyponatraemia [Recovered/Resolved with Sequelae]
  - Pulmonary arterial hypertension [Recovered/Resolved with Sequelae]
  - Oxygen saturation increased [Recovered/Resolved with Sequelae]
  - Dyspnoea [Recovered/Resolved with Sequelae]
  - Acute respiratory failure [Recovered/Resolved with Sequelae]
  - Condition aggravated [Unknown]
  - Oxygen saturation decreased [Recovered/Resolved with Sequelae]
  - Pulmonary haemorrhage [Recovered/Resolved with Sequelae]
  - Myalgia [Recovered/Resolved]
  - Pulmonary oedema [Recovered/Resolved with Sequelae]
  - Haemoglobin decreased [Not Recovered/Not Resolved]
  - Right ventricular failure [Unknown]
  - Muscle spasms [Unknown]
  - Tremor [Recovered/Resolved with Sequelae]
  - Hypoxia [Recovered/Resolved with Sequelae]
  - Left ventricular dysfunction [Recovered/Resolved with Sequelae]
  - Cardiac failure congestive [Recovered/Resolved with Sequelae]
  - Pneumonitis [Recovered/Resolved with Sequelae]

NARRATIVE: CASE EVENT DATE: 201607
